FAERS Safety Report 8505306-2 (Version None)
Quarter: 2012Q2

REPORT INFORMATION
  Report Type: 
  Country: None (occurrence: None)
  Receive Date: 20120405
  Receipt Date: 20100604
  Transmission Date: 20120825
  Serious: Yes (Other)
  Sender: FDA-Public Use
  Company Number: PHHY2010US36698

PATIENT
  Age: 90 Year
  Sex: Female

DRUGS (12)
  1. RECLAST [Suspect]
     Dosage: INFUSION
     Dates: start: 20100601
  2. NORVASC [Concomitant]
  3. LIPITOR [Concomitant]
  4. XANAX [Concomitant]
  5. LABETALOL HCL [Concomitant]
  6. PERSANTINE [Concomitant]
  7. BUMETANIDE [Concomitant]
  8. THORAZINE [Concomitant]
  9. IRON (IRON) [Concomitant]
  10. AVAPRO [Concomitant]
  11. POTASSIUM CHLORIDE [Concomitant]
  12. VITAMINS (NO INGRESIENTS/SUBSTANCES) [Concomitant]

REACTIONS (5)
  - ARTHRITIS [None]
  - TREMOR [None]
  - PYREXIA [None]
  - MUSCULOSKELETAL PAIN [None]
  - SOMNOLENCE [None]
